FAERS Safety Report 21790486 (Version 1)
Quarter: 2022Q4

REPORT INFORMATION
  Report Type: Spontaneous
  Country: US (occurrence: None)
  Receive Date: 20221227
  Receipt Date: 20221227
  Transmission Date: 20230112
  Serious: No
  Sender: FDA-Public Use
  Company Number: None

PATIENT
  Age: 52 Year
  Sex: Female

DRUGS (1)
  1. ADEMPAS [Suspect]
     Active Substance: RIOCIGUAT
     Indication: Pulmonary arterial hypertension
     Dosage: FREQUENCY : TWICE A DAY;?
     Route: 048
     Dates: start: 20221021, end: 20221227

REACTIONS (2)
  - Dizziness [None]
  - Palpitations [None]

NARRATIVE: CASE EVENT DATE: 20221227
